FAERS Safety Report 7702244-X (Version None)
Quarter: 2011Q3

REPORT INFORMATION
  Report Type: 
  Country: None (occurrence: None)
  Receive Date: 20110822
  Receipt Date: 20110816
  Transmission Date: 20111222
  Serious: Yes (Other)
  Sender: FDA-Public Use
  Company Number: CA-PFIZER INC-2011188334

PATIENT
  Age: 70 Year
  Sex: Male

DRUGS (5)
  1. ACTONEL [Concomitant]
     Indication: OSTEOPOROSIS
     Dosage: 35 MG, WEEKLY
  2. CALCIUM [Concomitant]
     Indication: PROPHYLAXIS
     Dosage: 400 MG, 2X/DAY
  3. AVODART [Concomitant]
     Indication: PROSTATIC DISORDER
     Dosage: 0.5 MG, 1X/DAY
  4. XALATAN [Suspect]
     Indication: GLAUCOMA
     Dosage: 1 DROP IN BOTH EYES, 1X/DAY
     Route: 047
  5. FLOMAX [Concomitant]
     Indication: PROSTATIC DISORDER
     Dosage: 0.4 MG, 1X/DAY

REACTIONS (1)
  - CATARACT OPERATION [None]
